FAERS Safety Report 9111812 (Version 1)
Quarter: 2013Q1

REPORT INFORMATION
  Report Type: Spontaneous
  Country: US (occurrence: US)
  Receive Date: 20130219
  Receipt Date: 20130219
  Transmission Date: 20140127
  Serious: No
  Sender: FDA-Public Use
  Company Number: US-BRISTOL-MYERS SQUIBB COMPANY-17002676

PATIENT
  Age: 74 Year
  Sex: Female
  Weight: 86.17 kg

DRUGS (10)
  1. ORENCIA [Suspect]
     Indication: RHEUMATOID ARTHRITIS
     Dosage: 125 MG PFS
     Route: 058
     Dates: start: 201106
  2. TRAMADOL [Concomitant]
  3. QUINAPRIL [Concomitant]
  4. METHOTREXATE [Concomitant]
  5. LOPRESSOR [Concomitant]
  6. LOMOTIL [Concomitant]
  7. HCTZ [Concomitant]
  8. CYTOTEC [Concomitant]
  9. CALCIUM + VITAMIN D [Concomitant]
  10. ASPIRIN [Concomitant]
     Dosage: LOW DOSE

REACTIONS (2)
  - Cough [Not Recovered/Not Resolved]
  - Nasal congestion [Not Recovered/Not Resolved]
